FAERS Safety Report 6442741-0 (Version None)
Quarter: 2009Q4

REPORT INFORMATION
  Report Type: 
  Country: None (occurrence: None)
  Receive Date: 20091117
  Receipt Date: 20091104
  Transmission Date: 20100525
  Serious: Yes (Other)
  Sender: FDA-Public Use
  Company Number: PHHY2009JP48557

PATIENT
  Age: 71 Year
  Sex: Male

DRUGS (1)
  1. CARBAMAZEPINE [Suspect]
     Indication: CONVULSION
     Dosage: UNK

REACTIONS (5)
  - ALANINE AMINOTRANSFERASE INCREASED [None]
  - DRUG RASH WITH EOSINOPHILIA AND SYSTEMIC SYMPTOMS [None]
  - GAMMA-GLUTAMYLTRANSFERASE INCREASED [None]
  - LYMPHADENOPATHY [None]
  - PYREXIA [None]
